FAERS Safety Report 12829133 (Version 1)
Quarter: 2016Q4

REPORT INFORMATION
  Report Type: Spontaneous
  Country: US (occurrence: US)
  Receive Date: 20161007
  Receipt Date: 20161007
  Transmission Date: 20170207
  Serious: No
  Sender: FDA-Public Use
  Company Number: US-SA-2016SA001574

PATIENT
  Age: 64 Year
  Sex: Female

DRUGS (9)
  1. AUBAGIO [Suspect]
     Active Substance: TERIFLUNOMIDE
     Indication: MULTIPLE SCLEROSIS
     Route: 048
  2. GRALISE [Concomitant]
     Active Substance: GABAPENTIN
  3. NAMENDA [Concomitant]
     Active Substance: MEMANTINE HYDROCHLORIDE
  4. GABAPENTIN. [Concomitant]
     Active Substance: GABAPENTIN
  5. AMPYRA [Concomitant]
     Active Substance: DALFAMPRIDINE
  6. BACLOFEN. [Concomitant]
     Active Substance: BACLOFEN
  7. CELEBREX [Concomitant]
     Active Substance: CELECOXIB
  8. NUVIGIL [Concomitant]
     Active Substance: ARMODAFINIL
  9. TOPROL XL [Concomitant]
     Active Substance: METOPROLOL SUCCINATE

REACTIONS (1)
  - Fall [Unknown]
